FAERS Safety Report 5107038-X (Version None)
Quarter: 2006Q3

REPORT INFORMATION
  Report Type: 
  Country: None (occurrence: None)
  Receive Date: 20060913
  Receipt Date: 20060906
  Transmission Date: 20061208
  Serious: Yes (Life-Threatening, Hospitalization)
  Sender: FDA-Public Use
  Company Number: GXKR2006DE05493

PATIENT
  Age: 31 Year
  Sex: Male

DRUGS (1)
  1. COTRIMHEXAL FORTE (NGX) (SULFAMETHOXAZOLE, TRIMETHOPRIM)TABLET, 960MG [Suspect]
     Indication: SINUSITIS
     Dosage: 960 MG, BID, ORAL
     Route: 048

REACTIONS (3)
  - ANGIONEUROTIC OEDEMA [None]
  - CARDIOVASCULAR DISORDER [None]
  - URTICARIA [None]
